FAERS Safety Report 10598825 (Version 2)
Quarter: 2014Q4

REPORT INFORMATION
  Report Type: Spontaneous
  Country: IT (occurrence: IT)
  Receive Date: 20141121
  Receipt Date: 20141204
  Transmission Date: 20150529
  Serious: Yes (Death, Hospitalization)
  Sender: FDA-Public Use
  Company Number: IT-BAYER-2014-166875

PATIENT
  Age: 63 Year
  Sex: Male

DRUGS (6)
  1. CEFDITOREN PIVOXIL. [Suspect]
     Active Substance: CEFDITOREN PIVOXIL
     Indication: ESCHERICHIA URINARY TRACT INFECTION
     Dosage: UNK
     Route: 048
     Dates: start: 20140128
  2. VANCOMYCIN [Suspect]
     Active Substance: VANCOMYCIN
     Indication: CLOSTRIDIUM DIFFICILE INFECTION
     Dosage: 500 MG, QID
     Route: 048
     Dates: start: 20140203
  3. CIPROFLOXACIN BETAIN [Suspect]
     Active Substance: CIPROFLOXACIN
     Indication: ESCHERICHIA URINARY TRACT INFECTION
     Dosage: UNK
     Route: 042
     Dates: start: 20140115
  4. CIPROFLOXACIN BETAIN [Suspect]
     Active Substance: CIPROFLOXACIN
     Indication: PYREXIA
  5. METRONIDAZOLE. [Concomitant]
     Active Substance: METRONIDAZOLE
     Indication: CLOSTRIDIUM DIFFICILE INFECTION
     Dosage: 500 MG, QID
     Route: 042
     Dates: start: 20140203
  6. PIPERACILLIN AND TAZOBACTAM [Concomitant]
     Active Substance: PIPERACILLIN SODIUM\TAZOBACTAM SODIUM
     Indication: CLOSTRIDIUM DIFFICILE INFECTION
     Dosage: 4.5 G, TID
     Route: 042
     Dates: start: 20140203

REACTIONS (6)
  - Septic shock [Fatal]
  - Enterococcus test positive [None]
  - Klebsiella sepsis [Fatal]
  - Pseudomembranous colitis [None]
  - Clostridium difficile infection [Fatal]
  - Megacolon [Fatal]

NARRATIVE: CASE EVENT DATE: 2014
